FAERS Safety Report 6046902-4 (Version None)
Quarter: 2009Q1

REPORT INFORMATION
  Report Type: 
  Country: None (occurrence: None)
  Receive Date: 20090122
  Receipt Date: 20090119
  Transmission Date: 20090719
  Serious: Yes (Other)
  Sender: FDA-Public Use
  Company Number: D0059910A

PATIENT
  Age: 61 Year
  Sex: Female
  Weight: 73 kg

DRUGS (1)
  1. LAMICTAL [Suspect]
     Indication: EPILEPSY
     Dosage: 150MG PER DAY
     Route: 065
     Dates: start: 20070301

REACTIONS (5)
  - GASTROINTESTINAL TRACT ADENOMA [None]
  - JOINT DISLOCATION [None]
  - MUSCLE ATROPHY [None]
  - TREMOR [None]
  - VITAMIN D DECREASED [None]
